FAERS Safety Report 9357373 (Version 1)
Quarter: 2013Q2

REPORT INFORMATION
  Report Type: Spontaneous
  Country: TR (occurrence: TR)
  Receive Date: 20130620
  Receipt Date: 20130620
  Transmission Date: 20140414
  Serious: Yes (Hospitalization)
  Sender: FDA-Public Use
  Company Number: TR-SANOFI-AVENTIS-2013SA059099

PATIENT
  Sex: Male
  Weight: 1.46 kg

DRUGS (2)
  1. LANTUS SOLOSTAR [Suspect]
     Indication: MATERNAL EXPOSURE TIMING UNSPECIFIED
     Route: 064
     Dates: start: 20130118, end: 20130208
  2. SOLOSTAR [Suspect]
     Indication: DEVICE THERAPY
     Dates: start: 20130118, end: 20130208

REACTIONS (3)
  - Lung disorder [Unknown]
  - Foetal exposure during pregnancy [Unknown]
  - Premature baby [Unknown]
